FAERS Safety Report 4780187-1 (Version None)
Quarter: 2005Q3

REPORT INFORMATION
  Report Type: 
  Country: None (occurrence: None)
  Receive Date: 20050927
  Receipt Date: 20050922
  Transmission Date: 20060218
  Serious: Yes (Other)
  Sender: FDA-Public Use
  Company Number: AU-SANOFI-SYNTHELABO-A01200506478

PATIENT

DRUGS (1)
  1. ELOXATIN [Suspect]
     Route: 042

REACTIONS (1)
  - RESPIRATORY ARREST [None]
